FAERS Safety Report 14127061 (Version 2)
Quarter: 2017Q4

REPORT INFORMATION
  Report Type: Report from Study
  Country: BR (occurrence: BR)
  Receive Date: 20171026
  Receipt Date: 20171221
  Transmission Date: 20180321
  Serious: Yes (Hospitalization, Other)
  Sender: FDA-Public Use
  Company Number: BR-UCBSA-2017042433

PATIENT
  Age: 6 Year
  Sex: Female

DRUGS (5)
  1. GARDENAL [Concomitant]
     Active Substance: PHENOBARBITAL
     Indication: PRODUCT USED FOR UNKNOWN INDICATION
     Dosage: 3.5 ML, 2X/DAY (BID)
  2. VIMPAT [Suspect]
     Active Substance: LACOSAMIDE
     Indication: SEIZURE
     Dosage: 100 MG, 2X/DAY (BID)
     Dates: start: 2017
  3. MIDAZOLAM [Concomitant]
     Active Substance: MIDAZOLAM HYDROCHLORIDE
     Indication: PRODUCT USED FOR UNKNOWN INDICATION
     Dosage: UNK
  4. LEVETIRACETAM. [Suspect]
     Active Substance: LEVETIRACETAM
     Indication: SEIZURE
     Dosage: 250 MG, 2X/DAY (BID)
     Dates: start: 2015
  5. VIMPAT [Suspect]
     Active Substance: LACOSAMIDE
     Indication: SEIZURE
     Dosage: 10 ML, 2X/DAY (BID)
     Dates: start: 20170920, end: 2017

REACTIONS (5)
  - Pneumonia [Recovered/Resolved]
  - Asthmatic crisis [Recovered/Resolved]
  - Off label use [Unknown]
  - Seizure [Recovered/Resolved]
  - Calculus bladder [Unknown]

NARRATIVE: CASE EVENT DATE: 2015
